FAERS Safety Report 6649195-X (Version None)
Quarter: 2010Q1

REPORT INFORMATION
  Report Type: 
  Country: None (occurrence: None)
  Receive Date: 20100324
  Receipt Date: 20100315
  Transmission Date: 20100710
  Serious: Yes (Hospitalization)
  Sender: FDA-Public Use
  Company Number: B0639863A

PATIENT
  Sex: Male

DRUGS (2)
  1. DEROXAT [Suspect]
     Dosage: 20MG PER DAY
     Route: 048
     Dates: start: 20100216, end: 20100222
  2. XANAX [Suspect]
     Dosage: .25MG PER DAY
     Route: 048
     Dates: start: 20100213, end: 20100222

REACTIONS (4)
  - CHOLESTASIS [None]
  - HEPATITIS ACUTE [None]
  - HEPATOCELLULAR INJURY [None]
  - JAUNDICE [None]
